FAERS Safety Report 16488927 (Version 1)
Quarter: 2019Q2

REPORT INFORMATION
  Report Type: Spontaneous
  Country: BR (occurrence: BR)
  Receive Date: 20190628
  Receipt Date: 20190628
  Transmission Date: 20190711
  Serious: Yes (Hospitalization, Disabling, Other)
  Sender: FDA-Public Use
  Company Number: BR-009507513-1906BRA008049

PATIENT
  Age: 91 Year
  Sex: Male
  Weight: 95 kg

DRUGS (8)
  1. ELIQUIS [Concomitant]
     Active Substance: APIXABAN
     Dosage: UNK MILLIGRAM
  2. PURAN [Concomitant]
     Active Substance: LEVOTHYROXINE SODIUM
  3. METOPROLOL TARTRATE. [Concomitant]
     Active Substance: METOPROLOL TARTRATE
     Dosage: UNK MILLIGRAM
  4. VASOGARD [Concomitant]
     Active Substance: CILOSTAZOL
  5. JANUMET [Suspect]
     Active Substance: METFORMIN HYDROCHLORIDE\SITAGLIPTIN PHOSPHATE
     Dosage: UNK
     Route: 048
     Dates: end: 201905
  6. PANTOPRAZOLE [Concomitant]
     Active Substance: PANTOPRAZOLE
  7. SIMVASTATIN. [Suspect]
     Active Substance: SIMVASTATIN
     Dosage: UNK MILLIGRAM
     Route: 048
  8. SILDENAFIL CITRATE. [Concomitant]
     Active Substance: SILDENAFIL CITRATE
     Dosage: UNK

REACTIONS (5)
  - Fall [Recovered/Resolved with Sequelae]
  - Femur fracture [Recovered/Resolved with Sequelae]
  - Pancreatic injury [Unknown]
  - Nephropathy toxic [Unknown]
  - Blood pressure increased [Recovered/Resolved]

NARRATIVE: CASE EVENT DATE: 20180627
